FAERS Safety Report 8832952 (Version 1)
Quarter: 2012Q4

REPORT INFORMATION
  Report Type: 
  Country: CA (occurrence: CA)
  Receive Date: 20121010
  Receipt Date: 20121010
  Transmission Date: 20130627
  Serious: Yes (Hospitalization)
  Sender: FDA-Public Use
  Company Number: CA-ELI_LILLY_AND_COMPANY-CA201210002075

PATIENT
  Age: 81 Year
  Sex: Female

DRUGS (16)
  1. FORTEO [Suspect]
     Indication: OSTEOPOROSIS
     Dosage: 20 ug, qd
     Route: 058
     Dates: start: 20111101
  2. IMOVANE [Concomitant]
     Dosage: UNK
  3. RAMIPRIL [Concomitant]
     Dosage: UNK
  4. SYNTHROID [Concomitant]
     Dosage: UNK
  5. INDOMETHACIN [Concomitant]
     Dosage: UNK
  6. GABAPENTIN [Concomitant]
     Dosage: UNK
  7. DOCUSATE [Concomitant]
     Dosage: UNK
  8. DILTIAZEM CD [Concomitant]
     Dosage: UNK
  9. CLONAZEPAM [Concomitant]
     Dosage: UNK
  10. LIPITOR [Concomitant]
     Dosage: UNK
  11. TYLENOL /00020001/ [Concomitant]
     Dosage: UNK
  12. DILAUDID [Concomitant]
     Dosage: UNK
  13. INSULIN [Concomitant]
     Dosage: UNK
  14. METFORMIN [Concomitant]
     Dosage: UNK
  15. PAXIL [Concomitant]
     Dosage: UNK
  16. OXAZEPAM [Concomitant]
     Dosage: UNK

REACTIONS (5)
  - Hip fracture [Not Recovered/Not Resolved]
  - Fall [Not Recovered/Not Resolved]
  - Soft tissue injury [Not Recovered/Not Resolved]
  - Fall [Not Recovered/Not Resolved]
  - Pain [Not Recovered/Not Resolved]
